FAERS Safety Report 4265582-1 (Version None)
Quarter: 2004Q1

REPORT INFORMATION
  Report Type: 
  Country: None (occurrence: None)
  Receive Date: 20040107
  Receipt Date: 20040107
  Transmission Date: 20041129
  Serious: Yes (Other)
  Sender: FDA-Public Use
  Company Number: None

PATIENT
  Age: 43 Year
  Sex: Female
  Weight: 77.1115 kg

DRUGS (1)
  1. LIPITOR [Suspect]
     Indication: BLOOD CHOLESTEROL INCREASED
     Dosage: 10MG DAILY ORAL
     Route: 048
     Dates: start: 20030910, end: 20040106

REACTIONS (4)
  - ASTHENIA [None]
  - HEADACHE [None]
  - LETHARGY [None]
  - MYALGIA [None]
